FAERS Safety Report 7778589-4 (Version None)
Quarter: 2011Q3

REPORT INFORMATION
  Report Type: 
  Country: None (occurrence: None)
  Receive Date: 20110926
  Receipt Date: 20110916
  Transmission Date: 20111222
  Serious: Yes (Life-Threatening, Hospitalization, Other)
  Sender: FDA-Public Use
  Company Number: US-BAYER-2011-031011

PATIENT
  Age: 22 Year
  Sex: Female
  Weight: 106.58 kg

DRUGS (7)
  1. CITALOPRAM [Concomitant]
     Dosage: UNK
     Dates: start: 20040101, end: 20100101
  2. DROSPIRENONE AND ETHINYL ESTRADIOL [Suspect]
     Indication: MENSTRUATION IRREGULAR
     Dosage: UNK
     Route: 048
     Dates: start: 20050101, end: 20090101
  3. CELEXA [Concomitant]
     Indication: DEPRESSION
  4. TOPIRAMATE [Concomitant]
  5. YASMIN [Suspect]
     Indication: MENSTRUATION IRREGULAR
     Dosage: UNK
     Route: 048
     Dates: start: 20050101, end: 20090101
  6. ADVAIR DISKUS 100/50 [Concomitant]
     Indication: ASTHMA
     Dosage: UNK
     Dates: start: 20040101, end: 20090101
  7. TOPAMAX [Concomitant]
     Indication: MIGRAINE
     Dosage: UNK
     Dates: start: 20060101, end: 20100101

REACTIONS (9)
  - CHOLELITHIASIS [None]
  - PAIN [None]
  - GENERAL PHYSICAL HEALTH DETERIORATION [None]
  - PULMONARY EMBOLISM [None]
  - INJURY [None]
  - ANXIETY [None]
  - THROMBOSIS [None]
  - ANHEDONIA [None]
  - CHOLECYSTECTOMY [None]
